FAERS Safety Report 6441177-6 (Version None)
Quarter: 2009Q4

REPORT INFORMATION
  Report Type: 
  Country: None (occurrence: None)
  Receive Date: 20091112
  Receipt Date: 20091109
  Transmission Date: 20100525
  Serious: Yes (Death)
  Sender: FDA-Public Use
  Company Number: 1000009996

PATIENT
  Sex: Female

DRUGS (1)
  1. LEXAPRO [Suspect]
     Dates: start: 20091101, end: 20091106

REACTIONS (1)
  - COMPLETED SUICIDE [None]
